FAERS Safety Report 11569487 (Version 1)
Quarter: 2015Q3

REPORT INFORMATION
  Report Type: Spontaneous
  Country: FR (occurrence: FR)
  Receive Date: 20150929
  Receipt Date: 20150929
  Transmission Date: 20151125
  Serious: Yes (Hospitalization)
  Sender: FDA-Public Use
  Company Number: FR-SA-2015SA143226

PATIENT
  Age: 82 Year
  Sex: Female

DRUGS (15)
  1. RIFATER [Suspect]
     Active Substance: ISONIAZID\PYRAZINAMIDE\RIFAMPIN
     Indication: TUBERCULOSIS
     Route: 065
     Dates: start: 20150519
  2. INNOHEP [Concomitant]
     Active Substance: TINZAPARIN SODIUM
     Dosage: L0000IU AXA AT12 HOURS
     Route: 058
  3. EUPANTOL [Concomitant]
     Active Substance: PANTOPRAZOLE SODIUM
     Dosage: 18 HOURS
     Route: 048
  4. TAZOCILLINE [Concomitant]
     Active Substance: PIPERACILLIN SODIUM\TAZOBACTAM SODIUM
  5. MYAMBUTOL [Suspect]
     Active Substance: ETHAMBUTOL HYDROCHLORIDE
     Indication: TUBERCULOSIS
     Route: 048
     Dates: start: 20150422, end: 20150511
  6. TAHOR [Concomitant]
     Active Substance: ATORVASTATIN CALCIUM
     Route: 048
  7. FLUCORTAC [Concomitant]
     Active Substance: FLUDROCORTISONE ACETATE
     Route: 048
     Dates: start: 20150408
  8. BECILAN [Concomitant]
     Active Substance: PYRIDOXINE
     Route: 048
     Dates: start: 20150422
  9. IMOVANE [Concomitant]
     Active Substance: ZOPICLONE
     Dosage: IF INSOMNIA
     Route: 048
  10. AERIUS [Concomitant]
     Active Substance: DESLORATADINE
     Dosage: IN MORNING
     Route: 048
  11. DAFALGAN [Concomitant]
     Active Substance: ACETAMINOPHEN
     Dosage: TID IF PAIN
     Route: 048
  12. TRANSIPEG [Concomitant]
     Active Substance: POLYETHYLENE GLYCOL 3350
     Dosage: IF CONSTIPATION
     Route: 048
  13. MYAMBUTOL [Suspect]
     Active Substance: ETHAMBUTOL HYDROCHLORIDE
     Indication: TUBERCULOSIS
     Route: 065
     Dates: start: 20150519
  14. HYDROCORTISONE. [Concomitant]
     Active Substance: HYDROCORTISONE
     Route: 048
     Dates: start: 20150408
  15. RIFATER [Suspect]
     Active Substance: ISONIAZID\PYRAZINAMIDE\RIFAMPIN
     Indication: TUBERCULOSIS
     Route: 048
     Dates: start: 20150422, end: 20150511

REACTIONS (2)
  - Hyperthermia [Recovered/Resolved]
  - Myalgia [Recovered/Resolved]

NARRATIVE: CASE EVENT DATE: 20150509
